FAERS Safety Report 10181910 (Version 2)
Quarter: 2014Q2

REPORT INFORMATION
  Report Type: Report from Study
  Country: VE (occurrence: VE)
  Receive Date: 20140519
  Receipt Date: 20140519
  Transmission Date: 20141212
  Serious: Yes (Death, Other)
  Sender: FDA-Public Use
  Company Number: VE-ABBVIE-13P-178-1127768-00

PATIENT
  Sex: Male

DRUGS (2)
  1. ZEMPLAR [Suspect]
     Indication: RENAL FAILURE
     Dosage: 50 MG/ML
     Route: 042
     Dates: start: 20120518
  2. ZEMPLAR [Suspect]
     Indication: NEPHROPATHY

REACTIONS (1)
  - Sepsis [Fatal]
